FAERS Safety Report 6808514-1 (Version None)
Quarter: 2010Q2

REPORT INFORMATION
  Report Type: 
  Country: None (occurrence: None)
  Receive Date: 20100629
  Receipt Date: 20090612
  Transmission Date: 20101027
  Serious: No
  Sender: FDA-Public Use
  Company Number: US-PFIZER INC-2009227376

PATIENT
  Sex: Female
  Weight: 46 kg

DRUGS (2)
  1. ZYVOX [Suspect]
     Indication: NOCARDIOSIS
     Dosage: 300 MG, 2X/DAY
     Route: 048
     Dates: start: 20090314
  2. LISINOPRIL [Concomitant]
     Dosage: UNK
     Dates: start: 20061201

REACTIONS (2)
  - ALOPECIA [None]
  - WRONG TECHNIQUE IN DRUG USAGE PROCESS [None]
